FAERS Safety Report 6142636-6 (Version None)
Quarter: 2009Q2

REPORT INFORMATION
  Report Type: 
  Country: None (occurrence: None)
  Receive Date: 20090403
  Receipt Date: 20090330
  Transmission Date: 20091009
  Serious: Yes (Hospitalization, Other)
  Sender: FDA-Public Use
  Company Number: FR-ASTRAZENECA-2009CG00604

PATIENT
  Age: 678 Month
  Sex: Female

DRUGS (3)
  1. ARIMIDEX [Suspect]
     Indication: BREAST CANCER
     Route: 048
     Dates: start: 20061201, end: 20081001
  2. ARIMIDEX [Suspect]
     Route: 048
     Dates: start: 20081105, end: 20090113
  3. PREVISCAN [Concomitant]
     Dates: end: 20081001

REACTIONS (2)
  - CHOLESTASIS [None]
  - CYTOLYTIC HEPATITIS [None]
